APPROVED DRUG PRODUCT: VAFSEO
Active Ingredient: VADADUSTAT
Strength: 450MG
Dosage Form/Route: TABLET;ORAL
Application: N215192 | Product #003
Applicant: AKEBIA THERAPEUTICS INC
Approved: Mar 27, 2024 | RLD: Yes | RS: Yes | Type: RX

PATENTS:
Patent 11857543 | Expires: Jun 9, 2034
Patent 11844756 | Expires: Mar 31, 2036
Patent 11065237 | Expires: Nov 14, 2034
Patent 9987262 | Expires: Nov 14, 2034
Patent 8940773 | Expires: Jun 26, 2027
Patent 8323671 | Expires: Apr 3, 2028
Patent 8343952 | Expires: Aug 14, 2027
Patent 7811595 | Expires: Mar 13, 2028
Patent RE47437 | Expires: Jun 26, 2027
Patent 9701636 | Expires: Nov 14, 2034
Patent 10149842 | Expires: Nov 14, 2034
Patent 11324734 | Expires: Mar 31, 2036
Patent 8598210 | Expires: Jun 26, 2027

EXCLUSIVITY:
Code: NCE | Date: Mar 27, 2029